FAERS Safety Report 10149436 (Version 1)
Quarter: 2014Q2

REPORT INFORMATION
  Report Type: Spontaneous
  Country: US (occurrence: None)
  Receive Date: 20140501
  Receipt Date: 20140501
  Transmission Date: 20141212
  Serious: No
  Sender: FDA-Public Use
  Company Number: None

PATIENT
  Age: 74 Year
  Sex: Female
  Weight: 56.7 kg

DRUGS (12)
  1. CIPROFLOXACIN NORTHSTAR RX LLC MEMPHIS, IN 38141 [Suspect]
     Indication: URINARY TRACT INFECTION
     Route: 048
     Dates: start: 20140330, end: 20140402
  2. ATENOLOL [Concomitant]
  3. VITAMIN C [Concomitant]
  4. E [Concomitant]
  5. B6 [Concomitant]
  6. VITAMIN D [Concomitant]
  7. B12 [Concomitant]
  8. FOLIC ACID [Concomitant]
  9. FISH OIL [Concomitant]
  10. FOLIC ACID [Concomitant]
  11. GLUCOSAMIN [Concomitant]
  12. CHRONDTRATIN [Concomitant]

REACTIONS (3)
  - Myalgia [None]
  - Joint swelling [None]
  - Tenderness [None]
